FAERS Safety Report 24740427 (Version 1)
Quarter: 2024Q4

REPORT INFORMATION
  Report Type: Spontaneous
  Country: US (occurrence: US)
  Receive Date: 20241216
  Receipt Date: 20241216
  Transmission Date: 20250114
  Serious: No
  Sender: JOHNSON AND JOHNSON
  Company Number: US-KENVUE-20241029910

PATIENT

DRUGS (1)
  1. TYLENOL [Suspect]
     Active Substance: ACETAMINOPHEN
     Indication: Product used for unknown indication
     Dosage: LARGE AMOUNT
     Route: 065

REACTIONS (4)
  - Lung disorder [Unknown]
  - Abdominal pain upper [Unknown]
  - Headache [Unknown]
  - Product use issue [Unknown]
